FAERS Safety Report 8230149-7 (Version None)
Quarter: 2012Q1

REPORT INFORMATION
  Report Type: 
  Country: None (occurrence: None)
  Receive Date: 20120323
  Receipt Date: 20120319
  Transmission Date: 20120608
  Serious: No
  Sender: FDA-Public Use
  Company Number: US-PFIZER INC-2012034589

PATIENT
  Sex: Male
  Weight: 87.982 kg

DRUGS (7)
  1. PREDNISONE [Concomitant]
     Indication: BURSITIS
     Dosage: 20 MG, DAILY
  2. VIAGRA [Suspect]
     Indication: ERECTILE DYSFUNCTION
     Dosage: UNK
     Route: 048
     Dates: start: 19980101
  3. VIAGRA [Suspect]
     Dosage: ONE AND HALF TABLET (75 MG), UNK
     Route: 048
     Dates: start: 20120206
  4. OMEPRAZOLE [Concomitant]
     Indication: DYSPEPSIA
     Dosage: 20 MG, DAILY
     Dates: start: 20120101
  5. VIAGRA [Suspect]
     Indication: PERIPHERAL VASCULAR DISORDER
     Dosage: 50 MG, AS NEEDED
     Route: 048
     Dates: start: 20120206
  6. PREDNISONE [Concomitant]
     Indication: ARTHRITIS
  7. PREDNISONE [Concomitant]
     Indication: TENDONITIS

REACTIONS (1)
  - PROSTATOMEGALY [None]
